FAERS Safety Report 6272598-2 (Version None)
Quarter: 2009Q3

REPORT INFORMATION
  Report Type: 
  Country: None (occurrence: None)
  Receive Date: 20090716
  Receipt Date: 20090716
  Transmission Date: 20100115
  Serious: No
  Sender: FDA-Public Use
  Company Number: None

PATIENT

DRUGS (2)
  1. CYCLOSPORINE [Suspect]
  2. COLCHICINE [Concomitant]

REACTIONS (1)
  - RENAL FAILURE [None]
